FAERS Safety Report 4630005-7 (Version None)
Quarter: 2005Q2

REPORT INFORMATION
  Report Type: 
  Country: None (occurrence: None)
  Receive Date: 20050408
  Receipt Date: 20050329
  Transmission Date: 20051028
  Serious: Yes (Death)
  Sender: FDA-Public Use
  Company Number: US-JNJFOC-20050203254

PATIENT
  Age: 47 Year
  Sex: Female

DRUGS (7)
  1. RISPERDAL CONSTA [Suspect]
     Indication: SCHIZOPHRENIA
     Dosage: THE PATIENT RECEIVED 1 DOSE.
     Route: 030
  2. ZOLOFT [Concomitant]
  3. ZYPREXA [Concomitant]
  4. ARTANE [Concomitant]
  5. VIRACEPT [Concomitant]
  6. COMBIVENT [Concomitant]
  7. COMBIVENT [Concomitant]

REACTIONS (2)
  - NEUROLEPTIC MALIGNANT SYNDROME [None]
  - VENTRICULAR FIBRILLATION [None]
